FAERS Safety Report 9407226 (Version 1)
Quarter: 2013Q3

REPORT INFORMATION
  Report Type: Spontaneous
  Country: US (occurrence: US)
  Receive Date: 20130718
  Receipt Date: 20130718
  Transmission Date: 20140515
  Serious: Yes (Other)
  Sender: FDA-Public Use
  Company Number: US-PFIZER INC-2013210862

PATIENT
  Sex: Male

DRUGS (1)
  1. ZOLOFT [Suspect]
     Indication: DEPRESSION
     Dosage: UNK

REACTIONS (8)
  - Suicide attempt [Unknown]
  - Mania [Unknown]
  - Head banging [Unknown]
  - Abnormal behaviour [Unknown]
  - Agitation [Unknown]
  - Anxiety [Unknown]
  - Abdominal discomfort [Unknown]
  - Insomnia [Unknown]
